FAERS Safety Report 8120083-5 (Version None)
Quarter: 2012Q1

REPORT INFORMATION
  Report Type: 
  Country: None (occurrence: None)
  Receive Date: 20120207
  Receipt Date: 20120127
  Transmission Date: 20120608
  Serious: Yes (Hospitalization)
  Sender: FDA-Public Use
  Company Number: PT-MEDIMMUNE-MEDI-0014693

PATIENT
  Sex: Female
  Weight: 9.6 kg

DRUGS (1)
  1. SYNAGIS [Suspect]
     Route: 058
     Dates: start: 20111026

REACTIONS (2)
  - RESPIRATORY SYNCYTIAL VIRUS BRONCHIOLITIS [None]
  - HYPOXIA [None]
